FAERS Safety Report 6199409-8 (Version None)
Quarter: 2009Q2

REPORT INFORMATION
  Report Type: 
  Country: None (occurrence: None)
  Receive Date: 20090520
  Receipt Date: 20090520
  Transmission Date: 20091009
  Serious: Yes (Other)
  Sender: FDA-Public Use
  Company Number: None

PATIENT
  Age: 25 Year
  Sex: Female
  Weight: 56.6996 kg

DRUGS (3)
  1. CYMBALTA [Suspect]
     Indication: ANXIETY
     Dosage: 60 - 120 MG DAILY PO
     Route: 048
     Dates: start: 20090311, end: 20090506
  2. CYMBALTA [Suspect]
     Indication: DEPRESSION
     Dosage: 60 - 120 MG DAILY PO
     Route: 048
     Dates: start: 20090311, end: 20090506
  3. VALIUM [Concomitant]

REACTIONS (32)
  - ABNORMAL DREAMS [None]
  - AFFECT LABILITY [None]
  - ALCOHOLISM [None]
  - ANXIETY [None]
  - BLOOD PRESSURE DECREASED [None]
  - CONDITION AGGRAVATED [None]
  - CONSTIPATION [None]
  - DIARRHOEA [None]
  - DISTURBANCE IN ATTENTION [None]
  - DIZZINESS [None]
  - DRUG DEPENDENCE [None]
  - DRUG WITHDRAWAL SYNDROME [None]
  - DRY EYE [None]
  - DRY MOUTH [None]
  - DRY SKIN [None]
  - FATIGUE [None]
  - FEELING ABNORMAL [None]
  - FRUSTRATION [None]
  - HEADACHE [None]
  - IMPAIRED WORK ABILITY [None]
  - INCREASED APPETITE [None]
  - INSOMNIA [None]
  - LIBIDO DECREASED [None]
  - LOSS OF CONSCIOUSNESS [None]
  - NAUSEA [None]
  - NERVOUSNESS [None]
  - PARAESTHESIA [None]
  - SUICIDAL IDEATION [None]
  - VISION BLURRED [None]
  - VULVOVAGINAL DRYNESS [None]
  - WEIGHT INCREASED [None]
  - WEIGHT LOSS POOR [None]
